FAERS Safety Report 7630164-8 (Version None)
Quarter: 2011Q3

REPORT INFORMATION
  Report Type: 
  Country: None (occurrence: None)
  Receive Date: 20110722
  Receipt Date: 20110711
  Transmission Date: 20111222
  Serious: Yes (Hospitalization)
  Sender: FDA-Public Use
  Company Number: NL-UCBSA-036991

PATIENT
  Age: 79 Year
  Sex: Female

DRUGS (3)
  1. CIMZIA [Suspect]
     Route: 058
     Dates: start: 20110101, end: 20110418
  2. CIMZIA [Suspect]
     Indication: RHEUMATOID ARTHRITIS
     Dosage: 0,2 AND 4 WEEKS , 2 INJECTION  200 MG
     Route: 058
     Dates: start: 20110125, end: 20110101
  3. PREDNISONE [Concomitant]

REACTIONS (1)
  - DIVERTICULITIS [None]
